FAERS Safety Report 11341974 (Version 2)
Quarter: 2015Q3

REPORT INFORMATION
  Report Type: Spontaneous
  Country: FR (occurrence: FR)
  Receive Date: 20150805
  Receipt Date: 20150810
  Transmission Date: 20151125
  Serious: Yes (Hospitalization, Other)
  Sender: FDA-Public Use
  Company Number: FR-JNJFOC-20150515809

PATIENT
  Age: 60 Year
  Sex: Female
  Weight: 47 kg

DRUGS (4)
  1. CAELYX (DOXORUBICIN HYDROCHLORIDE) [Suspect]
     Active Substance: DOXORUBICIN HYDROCHLORIDE
     Indication: OVARIAN CANCER
     Route: 042
     Dates: start: 20150327
  2. TAXOL [Suspect]
     Active Substance: PACLITAXEL
     Indication: OVARIAN CANCER
     Route: 042
     Dates: start: 20131219, end: 20141221
  3. CARBOPLATIN. [Suspect]
     Active Substance: CARBOPLATIN
     Indication: OVARIAN CANCER
     Route: 042
     Dates: start: 20131219, end: 201503
  4. AVASTIN [Suspect]
     Active Substance: BEVACIZUMAB
     Indication: OVARIAN CANCER
     Route: 042
     Dates: start: 20131219, end: 20141221

REACTIONS (7)
  - Large intestine perforation [Recovered/Resolved with Sequelae]
  - Cardiac failure [Recovered/Resolved]
  - Thrombocytopenia [Recovered/Resolved]
  - Shock [Recovered/Resolved]
  - Neutropenia [Recovered/Resolved]
  - Peritonitis [Recovered/Resolved with Sequelae]
  - Subileus [Recovered/Resolved]

NARRATIVE: CASE EVENT DATE: 201503
